FAERS Safety Report 9821399 (Version 1)
Quarter: 2014Q1

REPORT INFORMATION
  Report Type: Spontaneous
  Country: US (occurrence: US)
  Receive Date: 20140116
  Receipt Date: 20140116
  Transmission Date: 20141002
  Serious: No
  Sender: FDA-Public Use
  Company Number: US-009507513-1401USA004256

PATIENT
  Age: 77 Year
  Sex: Female

DRUGS (1)
  1. OXYTROL FOR WOMEN [Suspect]
     Indication: HYPERTONIC BLADDER
     Dosage: 1 DF, Q4D
     Route: 062
     Dates: start: 20131221, end: 20131229

REACTIONS (3)
  - Application site urticaria [Not Recovered/Not Resolved]
  - Application site rash [Not Recovered/Not Resolved]
  - Product quality issue [Unknown]
